FAERS Safety Report 14895488 (Version 3)
Quarter: 2020Q3

REPORT INFORMATION
  Report Type: Spontaneous
  Country: RO (occurrence: RO)
  Receive Date: 20180515
  Receipt Date: 20180820
  Transmission Date: 20201104
  Serious: Yes (Hospitalization, Other)
  Sender: FDA-Public Use
  Company Number: PHHY2018RO003553

PATIENT
  Age: 55 Year

DRUGS (5)
  1. AMPICILLIN SODIUM. [Suspect]
     Active Substance: AMPICILLIN SODIUM
     Indication: PRODUCT USED FOR UNKNOWN INDICATION
     Dosage: UNK
     Route: 065
  2. ETORICOXIB. [Suspect]
     Active Substance: ETORICOXIB
     Indication: DRUG PROVOCATION TEST
     Dosage: UNK
     Route: 048
  3. OXACILLIN [Suspect]
     Active Substance: OXACILLIN SODIUM
     Indication: PRODUCT USED FOR UNKNOWN INDICATION
     Dosage: UNK
     Route: 065
  4. METAMIZOLE [Suspect]
     Active Substance: METAMIZOLE
     Indication: PRODUCT USED FOR UNKNOWN INDICATION
     Dosage: UNK
     Route: 065
  5. CEFUROXIME. [Suspect]
     Active Substance: CEFUROXIME
     Indication: PRODUCT USED FOR UNKNOWN INDICATION
     Dosage: UNK
     Route: 065

REACTIONS (2)
  - Anaphylactic reaction [Recovered/Resolved]
  - Drug hypersensitivity [Unknown]
